FAERS Safety Report 16284785 (Version 1)
Quarter: 2019Q2

REPORT INFORMATION
  Report Type: Spontaneous
  Country: BR (occurrence: BR)
  Receive Date: 20190508
  Receipt Date: 20190508
  Transmission Date: 20190711
  Serious: Yes (Other)
  Sender: FDA-Public Use
  Company Number: BR-SA-2018SA313220

PATIENT
  Age: 41 Year
  Sex: Male
  Weight: 52 kg

DRUGS (1)
  1. FABRAZYME [Suspect]
     Active Substance: AGALSIDASE BETA
     Indication: FABRY^S DISEASE
     Dosage: 15 UNITS IN 15 DAYS
     Route: 041
     Dates: start: 2015, end: 2016

REACTIONS (3)
  - Therapeutic response decreased [Not Recovered/Not Resolved]
  - Drug hypersensitivity [Unknown]
  - Deafness [Unknown]

NARRATIVE: CASE EVENT DATE: 2016
